FAERS Safety Report 13999291 (Version 1)
Quarter: 2017Q3

REPORT INFORMATION
  Report Type: Spontaneous
  Country: GB (occurrence: GB)
  Receive Date: 20170922
  Receipt Date: 20170922
  Transmission Date: 20171128
  Serious: Yes (Other)
  Sender: FDA-Public Use
  Company Number: GB-TEVA-809480ACC

PATIENT
  Sex: Female

DRUGS (2)
  1. BENDAMUSTINE HYDROCHLORIDE. [Suspect]
     Active Substance: BENDAMUSTINE HYDROCHLORIDE
     Indication: B-CELL LYMPHOMA
     Route: 065
  2. OBINUTUZUMAB. [Suspect]
     Active Substance: OBINUTUZUMAB
     Indication: B-CELL LYMPHOMA
     Route: 065

REACTIONS (20)
  - Weight decreased [Unknown]
  - Hypotension [Unknown]
  - Nausea [Recovered/Resolved]
  - Feeling abnormal [Unknown]
  - Immunodeficiency [Unknown]
  - Ill-defined disorder [Unknown]
  - Mouth ulceration [Unknown]
  - Pyrexia [Unknown]
  - Disturbance in attention [Unknown]
  - Dermatitis allergic [Unknown]
  - Cough [Unknown]
  - Food allergy [Unknown]
  - Viral infection [Unknown]
  - Oropharyngeal pain [Unknown]
  - White blood cell count decreased [Unknown]
  - Malaise [Unknown]
  - Flushing [Unknown]
  - Decreased appetite [Recovered/Resolved]
  - Vein disorder [Unknown]
  - Pruritus [Unknown]
